FAERS Safety Report 13415896 (Version 1)
Quarter: 2017Q2

REPORT INFORMATION
  Report Type: Spontaneous
  Country: US (occurrence: US)
  Receive Date: 20170407
  Receipt Date: 20170407
  Transmission Date: 20170830
  Serious: No
  Sender: FDA-Public Use
  Company Number: US-PFIZER INC-2017144908

PATIENT
  Age: 37 Year
  Sex: Female

DRUGS (1)
  1. GEODON [Suspect]
     Active Substance: ZIPRASIDONE HYDROCHLORIDE\ZIPRASIDONE MESYLATE
     Dosage: UNK

REACTIONS (6)
  - Drug hypersensitivity [Unknown]
  - Muscle twitching [Unknown]
  - Anxiety [Unknown]
  - Tremor [Unknown]
  - Drug intolerance [Unknown]
  - Insomnia [Unknown]
